FAERS Safety Report 5361698-7 (Version None)
Quarter: 2007Q2

REPORT INFORMATION
  Report Type: 
  Country: None (occurrence: None)
  Receive Date: 20070530
  Receipt Date: 20070327
  Transmission Date: 20071010
  Serious: No
  Sender: FDA-Public Use
  Company Number: 2007PV032473

PATIENT
  Age: 53 Year
  Sex: Male
  Weight: 137.4399 kg

DRUGS (2)
  1. BYETTA [Suspect]
     Indication: DIABETES MELLITUS NON-INSULIN-DEPENDENT
     Dosage: 5 MCG; SC
     Route: 058
     Dates: start: 20070308
  2. NEXIUM [Concomitant]

REACTIONS (3)
  - ANOREXIA [None]
  - CONSTIPATION [None]
  - DYSPEPSIA [None]
